FAERS Safety Report 9341303 (Version 1)
Quarter: 2013Q2

REPORT INFORMATION
  Report Type: Spontaneous
  Country: US (occurrence: None)
  Receive Date: 20130610
  Receipt Date: 20130610
  Transmission Date: 20140414
  Serious: No
  Sender: FDA-Public Use
  Company Number: None

PATIENT
  Age: 64 Year
  Sex: Female

DRUGS (1)
  1. VELCADE MILLENNIUM [Suspect]
     Indication: PLASMA CELL MYELOMA

REACTIONS (2)
  - Drug ineffective [None]
  - Laboratory test abnormal [None]
